FAERS Safety Report 9123497 (Version 3)
Quarter: 2013Q2

REPORT INFORMATION
  Report Type: Report from Study
  Country: US (occurrence: US)
  Receive Date: 20130227
  Receipt Date: 20130509
  Transmission Date: 20140414
  Serious: Yes (Hospitalization)
  Sender: FDA-Public Use
  Company Number: PHEH2013US004662

PATIENT
  Sex: Male

DRUGS (7)
  1. TOBI [Suspect]
     Dosage: 300 MG / 5ML BID FOR 28 DAYS ON THEN 28 DAYS OFF
  2. CREON [Concomitant]
     Dosage: 10 DF, UNK
  3. OMEPRAZOLE [Concomitant]
     Dosage: 40 MG, UNK
  4. VITAMAX [Concomitant]
     Dosage: UNK UKN, UNK
  5. VITAMIN D [Concomitant]
     Dosage: 2000 IU, (2000 UNIT)
  6. SALINE [Concomitant]
     Dosage: UNK
  7. ALBUTEROL [Concomitant]
     Dosage: UNK

REACTIONS (3)
  - Infective pulmonary exacerbation of cystic fibrosis [Unknown]
  - Cystic fibrosis [Unknown]
  - Drug administered to patient of inappropriate age [Unknown]
